FAERS Safety Report 13870986 (Version 1)
Quarter: 2017Q3

REPORT INFORMATION
  Report Type: Other
  Country: GB (occurrence: GB)
  Receive Date: 20170816
  Receipt Date: 20170816
  Transmission Date: 20171127
  Serious: Yes (Other)
  Sender: FDA-Public Use
  Company Number: GB-LUPIN PHARMACEUTICALS INC.-2017-04518

PATIENT

DRUGS (2)
  1. SERTRALINE [Suspect]
     Active Substance: SERTRALINE HYDROCHLORIDE
     Dosage: 200 MG, UNK
     Route: 048
     Dates: end: 20170201
  2. SERTRALINE [Suspect]
     Active Substance: SERTRALINE HYDROCHLORIDE
     Indication: DEPRESSION
     Dosage: 25 MG, UNK
     Route: 048
     Dates: start: 20160401

REACTIONS (1)
  - Gambling disorder [Recovered/Resolved]

NARRATIVE: CASE EVENT DATE: 20160501
